FAERS Safety Report 7878704-8 (Version None)
Quarter: 2011Q4

REPORT INFORMATION
  Report Type: 
  Country: None (occurrence: None)
  Receive Date: 20111028
  Receipt Date: 20111013
  Transmission Date: 20120403
  Serious: Yes (Hospitalization, Disabling, Other)
  Sender: FDA-Public Use
  Company Number: 2011MA015130

PATIENT
  Age: 48 Year
  Sex: Female

DRUGS (1)
  1. VENLAFAXINE HYDROCHLORIDE [Suspect]
     Indication: INTENTIONAL OVERDOSE
     Dosage: 7.5 GM; X1; PO
     Route: 048

REACTIONS (13)
  - AUTOMATISM [None]
  - MEMORY IMPAIRMENT [None]
  - MUSCLE RIGIDITY [None]
  - CONVULSION [None]
  - HYPERREFLEXIA [None]
  - APHASIA [None]
  - HYPOXIC-ISCHAEMIC ENCEPHALOPATHY [None]
  - INTENTIONAL OVERDOSE [None]
  - SUICIDE ATTEMPT [None]
  - COGNITIVE DISORDER [None]
  - ANAL SPHINCTER ATONY [None]
  - DISORIENTATION [None]
  - COMA [None]
